FAERS Safety Report 23577838 (Version 1)
Quarter: 2024Q1

REPORT INFORMATION
  Report Type: Spontaneous
  Country: AR (occurrence: AR)
  Receive Date: 20240228
  Receipt Date: 20240228
  Transmission Date: 20240410
  Serious: Yes (Hospitalization, Other)
  Sender: FDA-Public Use
  Company Number: AR-009507513-2402ARG002533

PATIENT
  Age: 47 Year
  Sex: Female

DRUGS (1)
  1. KEYTRUDA [Suspect]
     Active Substance: PEMBROLIZUMAB
     Indication: Lung neoplasm malignant
     Dosage: 200 MG, EVERY 3 WEEKS
     Dates: start: 20230712, end: 20231123

REACTIONS (6)
  - Pneumonia [Unknown]
  - Hospitalisation [Not Recovered/Not Resolved]
  - Feeling abnormal [Unknown]
  - Bronchitis [Unknown]
  - Ill-defined disorder [Unknown]
  - Illness [Unknown]

NARRATIVE: CASE EVENT DATE: 20240201
